FAERS Safety Report 4954443-8 (Version None)
Quarter: 2006Q1

REPORT INFORMATION
  Report Type: 
  Country: None (occurrence: None)
  Receive Date: 20060322
  Receipt Date: 20060310
  Transmission Date: 20060701
  Serious: Yes (Other)
  Sender: FDA-Public Use
  Company Number: 2006BH005149

PATIENT
  Age: 2 Year
  Sex: Male

DRUGS (1)
  1. LACTATED RINGER'S [Suspect]
     Indication: FLUID REPLACEMENT
     Dosage: 300 ML;CONTINUOUS;IV
     Route: 042
     Dates: start: 20060307, end: 20060307

REACTIONS (4)
  - DYSPNOEA [None]
  - INFUSION RELATED REACTION [None]
  - PRURITUS [None]
  - RASH [None]
